FAERS Safety Report 19459655 (Version 1)
Quarter: 2021Q2

REPORT INFORMATION
  Report Type: Spontaneous
  Country: US (occurrence: US)
  Receive Date: 20210624
  Receipt Date: 20210624
  Transmission Date: 20210717
  Serious: Yes (Hospitalization)
  Sender: FDA-Public Use
  Company Number: US-CATALYST PHARMACEUTICALS, INC-2021CAT00274

PATIENT
  Age: 57 Year
  Sex: Male

DRUGS (1)
  1. FIRDAPSE [Suspect]
     Active Substance: AMIFAMPRIDINE PHOSPHATE
     Indication: MYASTHENIC SYNDROME
     Dosage: 60 MG TOTAL DAILY DOSE
     Route: 048
     Dates: start: 20200909

REACTIONS (3)
  - Heat stroke [Recovered/Resolved]
  - Chronic obstructive pulmonary disease [Unknown]
  - Syncope [Recovered/Resolved]

NARRATIVE: CASE EVENT DATE: 20210614
